FAERS Safety Report 5189818-8 (Version None)
Quarter: 2006Q4

REPORT INFORMATION
  Report Type: 
  Country: None (occurrence: None)
  Receive Date: 20061218
  Receipt Date: 20061204
  Transmission Date: 20070319
  Serious: Yes (Death)
  Sender: FDA-Public Use
  Company Number: HECT-10234

PATIENT
  Age: 67 Year
  Sex: Female

DRUGS (9)
  1. HECTOROL [Suspect]
     Indication: DRUG USE FOR UNKNOWN INDICATION
     Dates: end: 20060903
  2. RENAGEL [Suspect]
     Indication: HYPERPHOSPHATAEMIA
     Dosage: 2.4 G TID PO
     Route: 048
     Dates: start: 20060411, end: 20060902
  3. SODIUM BICARBONATE [Concomitant]
  4. REPLIVA [Concomitant]
  5. K-DUR 10 [Concomitant]
  6. EPOGEN [Concomitant]
  7. ASPIRIN [Concomitant]
  8. DIOVAN [Concomitant]
  9. COREG [Concomitant]

REACTIONS (5)
  - AORTIC VALVE REPLACEMENT [None]
  - CORONARY ARTERY BYPASS [None]
  - GANGRENE [None]
  - PERIPHERAL VASCULAR DISORDER [None]
  - SEPSIS [None]
